FAERS Safety Report 15593331 (Version 1)
Quarter: 2018Q4

REPORT INFORMATION
  Report Type: Spontaneous
  Country: US (occurrence: US)
  Receive Date: 20181107
  Receipt Date: 20181107
  Transmission Date: 20190205
  Serious: Yes (Life-Threatening, Hospitalization)
  Sender: FDA-Public Use
  Company Number: None

PATIENT
  Age: 17 Year
  Sex: Female
  Weight: 104.2 kg

DRUGS (1)
  1. ETHINYL ESTRADIOL/DROSPIRENONE [Suspect]
     Active Substance: DROSPIRENONE\ETHINYL ESTRADIOL
     Indication: ACNE
     Route: 048
     Dates: start: 20180815, end: 20181104

REACTIONS (5)
  - Cough [None]
  - Dyspnoea [None]
  - Drug ineffective [None]
  - Haemoptysis [None]
  - Pain in extremity [None]

NARRATIVE: CASE EVENT DATE: 20181104
